FAERS Safety Report 23594415 (Version 1)
Quarter: 2024Q1

REPORT INFORMATION
  Report Type: Spontaneous
  Country: US (occurrence: US)
  Receive Date: 20240305
  Receipt Date: 20240305
  Transmission Date: 20240409
  Serious: Yes (Other)
  Sender: FDA-Public Use
  Company Number: US-APOTEX-2024AP003076

PATIENT
  Age: 65 Year
  Sex: Female

DRUGS (6)
  1. CARFILZOMIB [Suspect]
     Active Substance: CARFILZOMIB
     Indication: Chemotherapy
     Dosage: UNK
     Route: 065
  2. CARFILZOMIB [Suspect]
     Active Substance: CARFILZOMIB
     Indication: Plasma cell myeloma
  3. POMALIDOMIDE [Suspect]
     Active Substance: POMALIDOMIDE
     Indication: Chemotherapy
     Dosage: UNK
     Route: 065
  4. POMALIDOMIDE [Suspect]
     Active Substance: POMALIDOMIDE
     Indication: Plasma cell myeloma
  5. DEXAMETHASONE [Suspect]
     Active Substance: DEXAMETHASONE
     Indication: Chemotherapy
     Dosage: UNK
     Route: 065
  6. DEXAMETHASONE [Suspect]
     Active Substance: DEXAMETHASONE
     Indication: Plasma cell myeloma

REACTIONS (1)
  - Pulmonary arterial hypertension [Recovered/Resolved]
